FAERS Safety Report 18094901 (Version 1)
Quarter: 2020Q3

REPORT INFORMATION
  Report Type: Spontaneous
  Country: ZA (occurrence: ZA)
  Receive Date: 20200730
  Receipt Date: 20200730
  Transmission Date: 20201103
  Serious: Yes (Death)
  Sender: FDA-Public Use
  Company Number: ZA-CELGENEUS-ZAF-20200706853

PATIENT
  Sex: Female

DRUGS (1)
  1. THALIDOMIDE [Suspect]
     Active Substance: THALIDOMIDE
     Indication: PLASMA CELL MYELOMA
     Dosage: 50
     Route: 048
     Dates: start: 20200617, end: 20200710

REACTIONS (2)
  - Plasma cell myeloma [Fatal]
  - Sepsis [Fatal]

NARRATIVE: CASE EVENT DATE: 2020
